FAERS Safety Report 16894017 (Version 7)
Quarter: 2020Q2

REPORT INFORMATION
  Report Type: Spontaneous
  Country: JP (occurrence: JP)
  Receive Date: 20191008
  Receipt Date: 20200518
  Transmission Date: 20200713
  Serious: Yes (Hospitalization, Other)
  Sender: FDA-Public Use
  Company Number: JP-AMGEN-JPNSP2019163384

PATIENT
  Age: 50 Year
  Sex: Male
  Weight: 102.6 kg

DRUGS (25)
  1. NESP [Concomitant]
     Active Substance: DARBEPOETIN ALFA
     Dosage: 80 UG, Q4W
     Route: 065
  2. TAKECAB [Concomitant]
     Active Substance: VONOPRAZAN FUMARATE
     Dosage: 10 MG
     Route: 048
  3. PARSABIV [Suspect]
     Active Substance: ETELCALCETIDE HYDROCHLORIDE
     Indication: HYPERPARATHYROIDISM SECONDARY
     Dosage: 5 MG, Q56H
     Route: 010
     Dates: start: 20190809, end: 20190830
  4. DALTEPARIN NA [Concomitant]
     Active Substance: DALTEPARIN SODIUM
     Dosage: 5000 IU
     Route: 010
  5. HEPARIN C [Concomitant]
     Dosage: UNK
     Route: 065
  6. MAXACALCITOL [Concomitant]
     Active Substance: MAXACALCITOL
     Dosage: 15 MICROGRAM, 3 TIMES/WK
     Route: 010
     Dates: start: 20200203
  7. RENAGEL [Concomitant]
     Active Substance: SEVELAMER HYDROCHLORIDE
     Dosage: 6000 MILLIGRAM, QD
     Route: 048
  8. CILOSTAZOL. [Concomitant]
     Active Substance: CILOSTAZOL
     Dosage: 100 MILLIGRAM, Q12H
     Route: 048
  9. HEPARIN C [Concomitant]
     Dosage: UNK
     Route: 065
  10. ALPROSTADIL. [Concomitant]
     Active Substance: ALPROSTADIL
     Dosage: 10 UG
     Route: 010
     Dates: start: 20190426
  11. HEPARIN C [Concomitant]
     Dosage: UNK
     Route: 065
  12. HERBESSER [Concomitant]
     Active Substance: DILTIAZEM HYDROCHLORIDE
     Dosage: 100 MG
     Route: 048
  13. MAXACALCITOL [Concomitant]
     Active Substance: MAXACALCITOL
     Dosage: 20 UG, Q56H
     Route: 010
     Dates: start: 20190201, end: 20190729
  14. MAXACALCITOL [Concomitant]
     Active Substance: MAXACALCITOL
     Dosage: 10 MICROGRAM, 3 TIMES/WK
     Route: 010
     Dates: start: 20190802
  15. L CARTIN FF [Concomitant]
     Active Substance: LEVOCARNITINE
     Dosage: 1000 IU
     Route: 010
  16. AMLODIPINE [Concomitant]
     Active Substance: AMLODIPINE BESYLATE
     Dosage: 10 MG
     Route: 048
  17. PARSABIV [Suspect]
     Active Substance: ETELCALCETIDE HYDROCHLORIDE
     Dosage: 15 MG, Q56H
     Route: 010
     Dates: start: 20200406
  18. MAXACALCITOL [Concomitant]
     Active Substance: MAXACALCITOL
     Dosage: 10 MICROGRAM, 3 TIMES/WK
     Route: 010
     Dates: end: 20190130
  19. MAXACALCITOL [Concomitant]
     Active Substance: MAXACALCITOL
     Dosage: 20 MICROGRAM, 3 TIMES/WK
     Route: 010
     Dates: start: 20190201, end: 20190729
  20. MAXACALCITOL [Concomitant]
     Active Substance: MAXACALCITOL
     Dosage: 10 UG, Q56H
     Route: 010
     Dates: end: 20190130
  21. MAXACALCITOL [Concomitant]
     Active Substance: MAXACALCITOL
     Dosage: 15 UG, Q56H
     Route: 010
     Dates: start: 20200203
  22. PARSABIV [Suspect]
     Active Substance: ETELCALCETIDE HYDROCHLORIDE
     Dosage: 10 MG, Q56H
     Route: 010
     Dates: start: 20190902, end: 20200403
  23. MAXACALCITOL [Concomitant]
     Active Substance: MAXACALCITOL
     Dosage: 10 UG, Q56H
     Route: 010
     Dates: start: 20190802, end: 20200131
  24. BAYASPIRIN [Concomitant]
     Active Substance: ASPIRIN
     Dosage: 100 MG
     Route: 048
  25. CILOSTAZOL. [Concomitant]
     Active Substance: CILOSTAZOL
     Dosage: 100 MG, Q12H
     Route: 048

REACTIONS (1)
  - Shunt aneurysm [Recovering/Resolving]

NARRATIVE: CASE EVENT DATE: 20190814
